FAERS Safety Report 24171078 (Version 1)
Quarter: 2024Q3

REPORT INFORMATION
  Report Type: Spontaneous
  Country: US (occurrence: US)
  Receive Date: 20240805
  Receipt Date: 20240805
  Transmission Date: 20241017
  Serious: No
  Sender: AVEVA
  Company Number: US-AVEVA-000719

PATIENT
  Sex: Male

DRUGS (2)
  1. NICOTINE [Suspect]
     Active Substance: NICOTINE
     Indication: Parkinsonism
     Dosage: UNK (14 MILLIGRAM/DAY)
     Route: 062
  2. NICOTINE [Suspect]
     Active Substance: NICOTINE
     Indication: Parkinsonism
     Dosage: UNK
     Route: 062

REACTIONS (2)
  - Rash [Unknown]
  - Off label use [Unknown]
